FAERS Safety Report 4675174-8 (Version None)
Quarter: 2005Q2

REPORT INFORMATION
  Report Type: 
  Country: None (occurrence: None)
  Receive Date: 20050526
  Receipt Date: 20050512
  Transmission Date: 20051028
  Serious: Yes (Other)
  Sender: FDA-Public Use
  Company Number: 2005063372

PATIENT
  Sex: Male

DRUGS (6)
  1. DILANTIN KAPSEAL [Suspect]
     Indication: CONVULSION
     Dosage: (1 IN 1 D), ORAL
     Route: 048
  2. LEVETIRACETAM [Suspect]
     Indication: CONVULSION
     Dosage: 3000 (1500 MG, 2 IN 1 D), ORAL
     Route: 048
     Dates: start: 20000101, end: 20041101
  3. VALPROATE SODIUM [Suspect]
     Indication: CONVULSION
  4. ZONISAMIDE (ZONISAMIDE) [Concomitant]
  5. ATENOLOL [Concomitant]
  6. ESCITALOPRAM OXALATE [Concomitant]

REACTIONS (8)
  - ABNORMAL BEHAVIOUR [None]
  - CONVULSION [None]
  - DEPRESSION [None]
  - DIZZINESS [None]
  - DRUG TOXICITY [None]
  - GAIT DISTURBANCE [None]
  - NYSTAGMUS [None]
  - PHARMACEUTICAL PRODUCT COMPLAINT [None]
